FAERS Safety Report 6383734-1 (Version None)
Quarter: 2009Q4

REPORT INFORMATION
  Report Type: 
  Country: None (occurrence: None)
  Receive Date: 20091001
  Receipt Date: 20090924
  Transmission Date: 20100525
  Serious: No
  Sender: FDA-Public Use
  Company Number: US-B.I. PHARMACEUTICALS,INC./RIDGEFIELD-2009-BP-11262BP

PATIENT
  Sex: Male

DRUGS (3)
  1. SPIRIVA [Suspect]
     Indication: CHRONIC OBSTRUCTIVE PULMONARY DISEASE
     Dosage: 18 MCG
     Route: 055
     Dates: start: 20090910
  2. MUCINEX [Concomitant]
     Indication: HEADACHE
     Route: 048
     Dates: start: 20090701
  3. EXCEDRIN PM [Concomitant]
     Indication: HEADACHE
     Route: 048
     Dates: start: 20090701

REACTIONS (1)
  - DRUG INEFFECTIVE [None]
